FAERS Safety Report 7932686-9 (Version None)
Quarter: 2011Q4

REPORT INFORMATION
  Report Type: 
  Country: None (occurrence: None)
  Receive Date: 20111122
  Receipt Date: 20111114
  Transmission Date: 20120403
  Serious: Yes (Hospitalization)
  Sender: FDA-Public Use
  Company Number: IT-JNJFOC-20111105755

PATIENT
  Sex: Female

DRUGS (1)
  1. LEVOFLOXACIN [Suspect]
     Indication: BRONCHOPNEUMONIA
     Route: 048
     Dates: start: 20111001, end: 20111015

REACTIONS (4)
  - HEPATIC FAILURE [None]
  - NEUTROPENIA [None]
  - LYMPHADENOPATHY [None]
  - PYREXIA [None]
